FAERS Safety Report 8349578-6 (Version None)
Quarter: 2012Q2

REPORT INFORMATION
  Report Type: 
  Country: None (occurrence: None)
  Receive Date: 20120508
  Receipt Date: 20120508
  Transmission Date: 20120825
  Serious: Yes (Hospitalization)
  Sender: FDA-Public Use
  Company Number: None

PATIENT
  Sex: Female
  Weight: 40.5 kg

DRUGS (5)
  1. CYCLOPHOSPHAMIDE [Suspect]
     Dosage: 1028 MG
  2. DOXIL [Suspect]
     Dosage: 55 MG
  3. VINCRISTINE SULFATE [Suspect]
     Dosage: 1.9 MG
  4. PREDNISONE [Suspect]
     Dosage: 500 MG
  5. RITUXIMAB (MOAB C2B8 ANTI CD20, CHIMERIC) [Suspect]
     Dosage: 514 MG

REACTIONS (9)
  - NAUSEA [None]
  - CHEST DISCOMFORT [None]
  - DYSPNOEA [None]
  - DIARRHOEA [None]
  - VOMITING [None]
  - STAPHYLOCOCCAL INFECTION [None]
  - PYREXIA [None]
  - LACTOBACILLUS INFECTION [None]
  - DEVICE RELATED INFECTION [None]
